FAERS Safety Report 17486002 (Version 1)
Quarter: 2020Q1

REPORT INFORMATION
  Report Type: Report from Study
  Country: FR (occurrence: FR)
  Receive Date: 20200303
  Receipt Date: 20200303
  Transmission Date: 20200409
  Serious: Yes (Other)
  Sender: FDA-Public Use
  Company Number: FR-ROCHE-2554429

PATIENT

DRUGS (5)
  1. IRINOTECAN [Suspect]
     Active Substance: IRINOTECAN
     Indication: COLON CANCER
     Route: 065
  2. CETUXIMAB. [Suspect]
     Active Substance: CETUXIMAB
     Indication: COLON CANCER
     Route: 065
  3. BEVACIZUMAB. [Suspect]
     Active Substance: BEVACIZUMAB
     Indication: COLON CANCER
     Route: 065
  4. OXALIPLATIN. [Suspect]
     Active Substance: OXALIPLATIN
     Indication: COLON CANCER
     Route: 065
  5. 5-FLUOROURACIL [FLUOROURACIL] [Suspect]
     Active Substance: FLUOROURACIL
     Indication: COLON CANCER
     Route: 065

REACTIONS (11)
  - Embolism [Unknown]
  - Neutropenic infection [Unknown]
  - Neuropathy peripheral [Unknown]
  - Nausea [Unknown]
  - Platelet count abnormal [Unknown]
  - Anaemia [Unknown]
  - Neutropenia [Unknown]
  - White blood cell count abnormal [Unknown]
  - Fatigue [Unknown]
  - Diarrhoea [Unknown]
  - Infection [Unknown]
